FAERS Safety Report 25455686 (Version 1)
Quarter: 2025Q2

REPORT INFORMATION
  Report Type: Spontaneous
  Country: US (occurrence: US)
  Receive Date: 20250619
  Receipt Date: 20250619
  Transmission Date: 20250717
  Serious: No
  Sender: BAUSCH AND LOMB
  Company Number: US-BAUSCHBL-2025BNL010776

PATIENT
  Age: 76 Year
  Sex: Female

DRUGS (1)
  1. POLYMYXIN B SULFATE AND TRIMETHOPRIM [Suspect]
     Active Substance: POLYMYXIN B SULFATE\TRIMETHOPRIM SULFATE
     Indication: Hordeolum
     Dosage: 1 DROP IN THE LEFT EYE 4 TIMES (EVERY 4 HOURS) DAILY
     Route: 047
     Dates: start: 20250612, end: 20250613

REACTIONS (5)
  - Burning sensation [Unknown]
  - Pain [Unknown]
  - Inflammation [Unknown]
  - Erythema [Unknown]
  - Inappropriate schedule of product administration [Unknown]

NARRATIVE: CASE EVENT DATE: 20250612
